FAERS Safety Report 7384182-8 (Version None)
Quarter: 2011Q1

REPORT INFORMATION
  Report Type: 
  Country: None (occurrence: None)
  Receive Date: 20110330
  Receipt Date: 20110316
  Transmission Date: 20110831
  Serious: Yes (Other)
  Sender: FDA-Public Use
  Company Number: B0709100A

PATIENT
  Sex: Male
  Weight: 78 kg

DRUGS (2)
  1. TAMSULOSINE [Concomitant]
     Indication: PROSTATIC ADENOMA
     Dosage: 4MG PER DAY
     Route: 065
     Dates: start: 20060101, end: 20100101
  2. AVODART [Suspect]
     Indication: PROSTATIC ADENOMA
     Dosage: .5MG PER DAY
     Route: 048
     Dates: start: 20091001, end: 20100220

REACTIONS (2)
  - URETHRAL OBSTRUCTION [None]
  - PROSTATE INDURATION [None]
